FAERS Safety Report 13484199 (Version 2)
Quarter: 2017Q3

REPORT INFORMATION
  Report Type: Spontaneous
  Country: US (occurrence: US)
  Receive Date: 20170426
  Receipt Date: 20170717
  Transmission Date: 20171127
  Serious: Yes (Other)
  Sender: FDA-Public Use
  Company Number: US-TEVA-762420USA

PATIENT
  Sex: Female

DRUGS (4)
  1. PROPRANOLOL [Suspect]
     Active Substance: PROPRANOLOL HYDROCHLORIDE
     Indication: BLOOD PRESSURE ABNORMAL
     Dosage: 40 MILLIGRAM DAILY;
     Dates: start: 20170328, end: 20170331
  2. XANAX [Concomitant]
     Active Substance: ALPRAZOLAM
     Indication: SLEEP DISORDER
  3. TRAMADOL. [Concomitant]
     Active Substance: TRAMADOL
  4. NIFEDIPINE. [Concomitant]
     Active Substance: NIFEDIPINE
     Indication: RAYNAUD^S PHENOMENON

REACTIONS (7)
  - Raynaud^s phenomenon [Recovered/Resolved]
  - Feeling jittery [Recovered/Resolved]
  - Product quality issue [Unknown]
  - Agitation [Recovered/Resolved]
  - Withdrawal syndrome [Recovered/Resolved]
  - Nervousness [Recovered/Resolved]
  - Dizziness [Recovered/Resolved]
